FAERS Safety Report 11327553 (Version 1)
Quarter: 2015Q3

REPORT INFORMATION
  Report Type: Spontaneous
  Country: US (occurrence: US)
  Receive Date: 20150731
  Receipt Date: 20150731
  Transmission Date: 20151125
  Serious: Yes (Hospitalization, Other)
  Sender: FDA-Public Use
  Company Number: US-TEVA-582366USA

PATIENT
  Age: 72 Year
  Sex: Male
  Weight: 108.96 kg

DRUGS (11)
  1. TIKOSYN [Suspect]
     Active Substance: DOFETILIDE
     Indication: ATRIAL FIBRILLATION
     Dosage: 400 MICROGRAM DAILY;
     Route: 065
  2. CRESTOR [Concomitant]
     Active Substance: ROSUVASTATIN CALCIUM
  3. COREG [Concomitant]
     Active Substance: CARVEDILOL
  4. DIGOXIN. [Concomitant]
     Active Substance: DIGOXIN
  5. TIKOSYN [Suspect]
     Active Substance: DOFETILIDE
     Indication: CARDIAC FAILURE
  6. TORASEMIDE [Suspect]
     Active Substance: TORSEMIDE
     Indication: CARDIAC FAILURE
     Dosage: 10 MILLIGRAM DAILY;
     Route: 065
     Dates: start: 201504
  7. XARELTO [Concomitant]
     Active Substance: RIVAROXABAN
  8. LISINOPRIL. [Concomitant]
     Active Substance: LISINOPRIL
  9. VESICARE [Concomitant]
     Active Substance: SOLIFENACIN SUCCINATE
     Indication: URINARY TRACT OBSTRUCTION
  10. FLOMAX [Concomitant]
     Active Substance: TAMSULOSIN HYDROCHLORIDE
  11. SPIRONOLACTONE. [Concomitant]
     Active Substance: SPIRONOLACTONE

REACTIONS (7)
  - Urinary tract infection [Not Recovered/Not Resolved]
  - Cardiac operation [Recovered/Resolved]
  - Surgery [Unknown]
  - Medication error [Unknown]
  - Sepsis [Recovered/Resolved]
  - Cardiac ablation [Unknown]
  - Cardiac pacemaker adjustment [Unknown]

NARRATIVE: CASE EVENT DATE: 2015
